FAERS Safety Report 12939314 (Version 1)
Quarter: 2016Q4

REPORT INFORMATION
  Report Type: Report from Study
  Country: US (occurrence: US)
  Receive Date: 20161115
  Receipt Date: 20161115
  Transmission Date: 20170207
  Serious: Yes (Hospitalization)
  Sender: FDA-Public Use
  Company Number: US-BIOVITRUM-2016US0902

PATIENT
  Sex: Female

DRUGS (1)
  1. KINERET [Suspect]
     Active Substance: ANAKINRA
     Indication: STILL^S DISEASE ADULT ONSET
     Route: 058
     Dates: start: 20161006

REACTIONS (2)
  - Injection site hypersensitivity [Unknown]
  - Seizure [Unknown]

NARRATIVE: CASE EVENT DATE: 2016
